FAERS Safety Report 12129171 (Version 1)
Quarter: 2016Q1

REPORT INFORMATION
  Report Type: Other
  Country: US (occurrence: US)
  Receive Date: 20160229
  Receipt Date: 20160229
  Transmission Date: 20160526
  Serious: Yes (Hospitalization, Other)
  Sender: FDA-Public Use
  Company Number: US-ACORDA-ACO_119884_2015

PATIENT
  Age: 59 Year
  Sex: Female

DRUGS (1)
  1. AMPYRA [Suspect]
     Active Substance: DALFAMPRIDINE
     Indication: MULTIPLE SCLEROSIS
     Dosage: 10 MG, Q 12 HRS
     Route: 048
     Dates: start: 201505

REACTIONS (5)
  - Hip fracture [Recovering/Resolving]
  - Fall [Recovering/Resolving]
  - Balance disorder [Unknown]
  - Osteoporosis [Unknown]
  - Abasia [Recovering/Resolving]

NARRATIVE: CASE EVENT DATE: 20151128
